FAERS Safety Report 8882153 (Version 1)
Quarter: 2012Q4

REPORT INFORMATION
  Report Type: 
  Country: US (occurrence: US)
  Receive Date: 20121102
  Receipt Date: 20121102
  Transmission Date: 20130627
  Serious: Yes (Hospitalization, Other)
  Sender: FDA-Public Use
  Company Number: US-ELI_LILLY_AND_COMPANY-US201210009493

PATIENT
  Sex: Male

DRUGS (9)
  1. EFFIENT [Suspect]
     Indication: STENT PLACEMENT
     Dosage: UNK, unknown
     Route: 065
     Dates: start: 201110, end: 20121022
  2. ASPIRIN [Concomitant]
  3. AMIODARONE [Concomitant]
  4. HYDROCHLOROTHIAZID [Concomitant]
  5. LANTUS                             /01483501/ [Concomitant]
     Dosage: 35 IU, qd
  6. METOPROLOL [Concomitant]
  7. NOVOLOG [Concomitant]
  8. SIMVASTATIN [Concomitant]
  9. KCL [Concomitant]

REACTIONS (2)
  - Duodenal ulcer haemorrhage [Unknown]
  - Coronary artery bypass [Unknown]
